FAERS Safety Report 6828294-3 (Version None)
Quarter: 2010Q3

REPORT INFORMATION
  Report Type: 
  Country: None (occurrence: None)
  Receive Date: 20100709
  Receipt Date: 20070202
  Transmission Date: 20110219
  Serious: No
  Sender: FDA-Public Use
  Company Number: US-PFIZER INC-2007010082

PATIENT
  Sex: Female
  Weight: 61.23 kg

DRUGS (6)
  1. CHANTIX [Suspect]
     Indication: SMOKING CESSATION THERAPY
     Dates: start: 20070126, end: 20070131
  2. LEXAPRO [Concomitant]
  3. ATENOLOL [Concomitant]
  4. DARVOCET [Concomitant]
  5. RANITIDINE [Concomitant]
  6. CLONAZEPAM [Concomitant]

REACTIONS (6)
  - ARTHRALGIA [None]
  - DIARRHOEA [None]
  - HEADACHE [None]
  - INFLUENZA [None]
  - NAUSEA [None]
  - VOMITING [None]
